FAERS Safety Report 7809148 (Version 5)
Quarter: 2012Q4

REPORT INFORMATION
  Report Type: Report from Study
  Country: US (occurrence: US)
  Receive Date: 20110211
  Receipt Date: 20121102
  Transmission Date: 20130627
  Serious: Yes (Hospitalization)
  Sender: FDA-Public Use
  Company Number: US-JNJFOC-20110201406

PATIENT
  Age: 15 Year
  Sex: Female
  Weight: 48.8 kg

DRUGS (8)
  1. REMICADE [Suspect]
     Indication: CROHN^S DISEASE
     Route: 042
     Dates: start: 20071123, end: 20100525
  2. 5-ASA [Concomitant]
     Route: 048
  3. HUMIRA [Concomitant]
     Route: 058
     Dates: start: 20100601
  4. PRILOSEC [Concomitant]
  5. VITAMIN D [Concomitant]
  6. VITAMIN D [Concomitant]
  7. CALCIUM [Concomitant]
  8. FERROUS SULFATE [Concomitant]

REACTIONS (1)
  - Cellulitis [Recovered/Resolved]
